FAERS Safety Report 13340027 (Version 2)
Quarter: 2017Q2

REPORT INFORMATION
  Report Type: Report from Study
  Country: DE (occurrence: DE)
  Receive Date: 20170316
  Receipt Date: 20170424
  Transmission Date: 20170830
  Serious: Yes (Other)
  Sender: FDA-Public Use
  Company Number: DE-ROCHE-1890515

PATIENT
  Age: 41 Year
  Sex: Male
  Weight: 62 kg

DRUGS (5)
  1. RIBAVIRIN. [Suspect]
     Active Substance: RIBAVIRIN
     Indication: CHRONIC HEPATITIS C
     Dosage: GIVEN IN 2 DOSES (SINGLE DOSES NOT SPECIFIED)
     Route: 048
     Dates: start: 20111021, end: 20120406
  2. PEG-INTERFERON ALFA 2A [Suspect]
     Active Substance: PEGINTERFERON ALFA-2A
     Indication: CHRONIC HEPATITIS C
     Route: 058
     Dates: start: 20111021, end: 20120406
  3. PANTOPRAZOL [Concomitant]
     Active Substance: PANTOPRAZOLE SODIUM
     Dosage: ENTERICCOATED TABLETS
     Route: 048
  4. INCIVO [Suspect]
     Active Substance: TELAPREVIR
     Indication: CHRONIC HEPATITIS C
     Route: 048
     Dates: start: 20111021, end: 20120112
  5. LOPERAMID [Concomitant]
     Active Substance: LOPERAMIDE
     Dosage: AS REQUIRED
     Route: 065
     Dates: start: 20111205

REACTIONS (9)
  - Pruritus [Recovered/Resolved]
  - Anal pruritus [Recovered/Resolved]
  - Irritability [Recovered/Resolved]
  - Dysgeusia [Recovered/Resolved]
  - Influenza [Recovered/Resolved]
  - Muscular weakness [Recovered/Resolved]
  - Cough [Recovered/Resolved]
  - Diarrhoea [Recovered/Resolved]
  - Alanine aminotransferase increased [Recovered/Resolved]

NARRATIVE: CASE EVENT DATE: 20111021
